FAERS Safety Report 25164007 (Version 1)
Quarter: 2025Q2

REPORT INFORMATION
  Report Type: Report from Study
  Country: US (occurrence: US)
  Receive Date: 20250405
  Receipt Date: 20250405
  Transmission Date: 20250716
  Serious: Yes (Other)
  Sender: ABBVIE
  Company Number: US-ABBVIE-5833932

PATIENT
  Age: 54 Year
  Sex: Female

DRUGS (4)
  1. RINVOQ [Suspect]
     Active Substance: UPADACITINIB
     Indication: Dermatitis atopic
     Dosage: FORM STRENGTH:15 MILLIGRAM LAST ADMIN DATE NOV 2023
     Route: 048
     Dates: start: 20231127
  2. RINVOQ [Suspect]
     Active Substance: UPADACITINIB
     Indication: Dermatitis atopic
     Dosage: 15 MG LAST ADMIN DATE 2023
     Route: 048
     Dates: start: 202310
  3. RINVOQ [Suspect]
     Active Substance: UPADACITINIB
     Indication: Dermatitis atopic
     Dosage: FORM STRENGTH:15 MILLIGRAM
     Route: 048
     Dates: start: 202401, end: 202502
  4. RINVOQ [Suspect]
     Active Substance: UPADACITINIB
     Indication: Dermatitis atopic
     Dosage: STRENGTH: 15 MG
     Route: 048
     Dates: start: 20250307

REACTIONS (5)
  - Surgery [Unknown]
  - Papule [Recovering/Resolving]
  - Dermatitis atopic [Unknown]
  - Diarrhoea [Recovered/Resolved]
  - Herpes zoster [Recovered/Resolved]

NARRATIVE: CASE EVENT DATE: 20231101
